FAERS Safety Report 8529556-4 (Version None)
Quarter: 2012Q2

REPORT INFORMATION
  Report Type: 
  Country: None (occurrence: None)
  Receive Date: 20120409
  Receipt Date: 20110701
  Transmission Date: 20120825
  Serious: Yes (Death, Hospitalization)
  Sender: FDA-Public Use
  Company Number: 2010-421

PATIENT
  Age: 65 Year
  Sex: Female

DRUGS (1)
  1. FAZACLO ODT [Suspect]
     Dosage: 275 TO 600 MG QD, ORAL
     Route: 048
     Dates: start: 20100125, end: 20101031

REACTIONS (1)
  - SEPSIS [None]
